FAERS Safety Report 4796347-X (Version None)
Quarter: 2005Q4

REPORT INFORMATION
  Report Type: 
  Country: None (occurrence: None)
  Receive Date: 20051007
  Receipt Date: 20050926
  Transmission Date: 20060501
  Serious: Yes (Hospitalization)
  Sender: FDA-Public Use
  Company Number: CIP05002278

PATIENT
  Age: 102 Year
  Sex: Female

DRUGS (5)
  1. FURADANTIN [Suspect]
     Indication: CYSTITIS
     Dosage: 1 DF THREE TIMES DAILY, ORAL
     Route: 048
     Dates: start: 20050711, end: 20050718
  2. FUROSEMIDE [Suspect]
     Dosage: ORAL
     Route: 048
  3. VAGOSTABYL (CALCIUM, LACTATE, CRATAEGUS LAEVIGATA, MELISSA OFFICINALIS [Concomitant]
  4. KARDEGIC(ACETYLSALICYLATE LYSINE) [Concomitant]
  5. MICARDIS [Concomitant]

REACTIONS (2)
  - DIARRHOEA [None]
  - RENAL FAILURE [None]
